FAERS Safety Report 8785801 (Version 1)
Quarter: 2012Q4

REPORT INFORMATION
  Report Type: 
  Country: GB (occurrence: GB)
  Receive Date: 20120914
  Receipt Date: 20120914
  Transmission Date: 20130627
  Serious: Yes (Life-Threatening, Hospitalization, Disabling)
  Sender: FDA-Public Use
  Company Number: GB-GLAXOSMITHKLINE-B0828608A

PATIENT
  Age: 71 Year
  Sex: Male

DRUGS (7)
  1. VOTRIENT [Suspect]
     Indication: PRODUCT USED FOR UNKNOWN INDICATION
     Route: 048
     Dates: start: 20120628, end: 20120727
  2. ALLOPURINOL [Concomitant]
  3. ATENOLOL [Concomitant]
  4. PARACETAMOL [Concomitant]
  5. RANITIDINE [Concomitant]
  6. METOCLOPRAMIDE [Concomitant]
  7. LOPERAMIDE [Concomitant]

REACTIONS (5)
  - Cerebral haematoma [Recovering/Resolving]
  - Hypertension [Recovering/Resolving]
  - Confusional state [Unknown]
  - Headache [Unknown]
  - Balance disorder [Unknown]
